FAERS Safety Report 4456642-0 (Version None)
Quarter: 2004Q3

REPORT INFORMATION
  Report Type: 
  Country: None (occurrence: None)
  Receive Date: 20040921
  Receipt Date: 20040907
  Transmission Date: 20050211
  Serious: No
  Sender: FDA-Public Use
  Company Number: FR-SHR-04-020114

PATIENT
  Age: 27 Year
  Sex: Female
  Weight: 48 kg

DRUGS (2)
  1. MIRENA [Suspect]
     Indication: CONTRACEPTION
     Dosage: 20 MCG, CON, INTRA-UTERINE
     Route: 015
     Dates: start: 20031126
  2. MICROVAL [Concomitant]

REACTIONS (6)
  - HAEMATOMA [None]
  - MEDICATION ERROR [None]
  - METRORRHAGIA [None]
  - PLACENTAL DISORDER [None]
  - PLACENTAL INSUFFICIENCY [None]
  - PREMATURE BABY [None]
